FAERS Safety Report 25186828 (Version 1)
Quarter: 2025Q2

REPORT INFORMATION
  Report Type: Spontaneous
  Country: FR (occurrence: FR)
  Receive Date: 20250411
  Receipt Date: 20250411
  Transmission Date: 20250716
  Serious: Yes (Hospitalization)
  Sender: JOHNSON AND JOHNSON
  Company Number: None

PATIENT
  Age: 39 Year
  Sex: Male

DRUGS (12)
  1. RISPERDAL [Suspect]
     Active Substance: RISPERIDONE
     Indication: Wrong patient received product
     Route: 048
     Dates: start: 20250315, end: 20250315
  2. RISPERDAL [Suspect]
     Active Substance: RISPERIDONE
  3. RISPERDAL [Suspect]
     Active Substance: RISPERIDONE
  4. RISPERDAL [Suspect]
     Active Substance: RISPERIDONE
  5. RISPERDAL [Suspect]
     Active Substance: RISPERIDONE
  6. RISPERDAL [Suspect]
     Active Substance: RISPERIDONE
  7. ATARAX [Suspect]
     Active Substance: HYDROXYZINE HYDROCHLORIDE
     Indication: Wrong patient received product
     Route: 048
     Dates: start: 20250315, end: 20250315
  8. TROPATEPINE HYDROCHLORIDE [Suspect]
     Active Substance: TROPATEPINE HYDROCHLORIDE
     Indication: Wrong patient received product
     Route: 048
     Dates: start: 20250315, end: 20250315
  9. LOXAPINE [Suspect]
     Active Substance: LOXAPINE
     Indication: Wrong patient received product
     Route: 048
     Dates: start: 20250315, end: 20250315
  10. PRAZEPAM [Suspect]
     Active Substance: PRAZEPAM
     Indication: Wrong patient received product
     Route: 048
     Dates: start: 20250315, end: 20250315
  11. DIAZEPAM [Suspect]
     Active Substance: DIAZEPAM
     Indication: Wrong patient received product
     Route: 048
     Dates: start: 20250315, end: 20250315
  12. QUETIAPINE [Suspect]
     Active Substance: QUETIAPINE
     Indication: Wrong patient received product
     Route: 048
     Dates: start: 20250315, end: 20250315

REACTIONS (3)
  - Somnolence [Recovered/Resolved]
  - Wrong patient received product [Recovered/Resolved]
  - Hospitalisation [Recovered/Resolved]

NARRATIVE: CASE EVENT DATE: 20250315
